FAERS Safety Report 15949409 (Version 1)
Quarter: 2019Q1

REPORT INFORMATION
  Report Type: Spontaneous
  Country: FR (occurrence: FR)
  Receive Date: 20190212
  Receipt Date: 20190212
  Transmission Date: 20190417
  Serious: Yes (Other)
  Sender: FDA-Public Use
  Company Number: PHHY2019FR029858

PATIENT
  Age: 34 Year
  Sex: Female

DRUGS (3)
  1. CANDESARTAN CILEXETIL. [Suspect]
     Active Substance: CANDESARTAN CILEXETIL
     Dosage: 8 MG, QD
     Route: 065
  2. BISOPROLOL [Suspect]
     Active Substance: BISOPROLOL
     Indication: CONGESTIVE CARDIOMYOPATHY
     Dosage: 5 MG, QD
     Route: 065
  3. CANDESARTAN CILEXETIL. [Suspect]
     Active Substance: CANDESARTAN CILEXETIL
     Indication: CONGESTIVE CARDIOMYOPATHY
     Dosage: 16 MG, QD
     Route: 065

REACTIONS (4)
  - Product use in unapproved indication [Unknown]
  - Premature delivery [Unknown]
  - Maternal exposure during pregnancy [Unknown]
  - Cardiac dysfunction [Unknown]
